FAERS Safety Report 7138490-6 (Version None)
Quarter: 2010Q4

REPORT INFORMATION
  Report Type: 
  Country: None (occurrence: None)
  Receive Date: 20101103
  Receipt Date: 20101022
  Transmission Date: 20110411
  Serious: Yes (Disabling)
  Sender: FDA-Public Use
  Company Number: 2010024086

PATIENT
  Sex: Female
  Weight: 72.5 kg

DRUGS (5)
  1. HIZENTRA [Suspect]
     Indication: IMMUNODEFICIENCY COMMON VARIABLE
     Dosage: 35 ML 2X/WEEK, SUBCUTANEOUS
     Route: 058
     Dates: start: 20100503, end: 20100524
  2. HIZENTRA [Suspect]
     Dosage: 35 ML (7 G) TWICE WEEKLY, SUBCUTANEOUS
  3. HIZENTRA [Suspect]
  4. HIZENTRA [Suspect]
  5. HIZENTRA [Suspect]

REACTIONS (3)
  - ABASIA [None]
  - ARTHRALGIA [None]
  - BONE PAIN [None]
